FAERS Safety Report 18758837 (Version 2)
Quarter: 2021Q1

REPORT INFORMATION
  Report Type: Spontaneous
  Country: JP (occurrence: JP)
  Receive Date: 20210120
  Receipt Date: 20210202
  Transmission Date: 20210419
  Serious: Yes (Hospitalization, Other)
  Sender: FDA-Public Use
  Company Number: JP-SUNPHARMA-2021RR-275629AA

PATIENT
  Age: 46 Year
  Sex: Female

DRUGS (6)
  1. IRINOTECAN [Suspect]
     Active Substance: IRINOTECAN
     Indication: NEUROENDOCRINE CARCINOMA
     Dosage: 60 MILLIGRAM/SQ. METER, DAILY
     Route: 065
  2. OXALIPLATIN NIPPON KAYAKU [Suspect]
     Active Substance: OXALIPLATIN
     Indication: NEUROENDOCRINE CARCINOMA
     Dosage: S?1 PLUS OXALIPLATIN
     Route: 065
  3. CISPLATIN NICHI?IKO PHARMACEUTICAL [Suspect]
     Active Substance: CISPLATIN
     Indication: NEUROENDOCRINE CARCINOMA
     Dosage: 60 MILLIGRAM/SQ. METER, DAILY
     Route: 065
  4. TS?1 [Suspect]
     Active Substance: GIMERACIL\OTERACIL\TEGAFUR
     Indication: NEUROENDOCRINE CARCINOMA
     Dosage: UNK
     Route: 065
  5. IRINOTECAN [Suspect]
     Active Substance: IRINOTECAN
     Dosage: 48 MILLIGRAM/SQ. METER, UNK
     Route: 065
  6. CISPLATIN NICHI?IKO PHARMACEUTICAL [Suspect]
     Active Substance: CISPLATIN
     Dosage: 48 MILLIGRAM/SQ. METER, UNK
     Route: 065

REACTIONS (4)
  - Disease progression [Unknown]
  - Neutropenia [Unknown]
  - Drug ineffective [Unknown]
  - Renal failure [Unknown]
